FAERS Safety Report 6095689-8 (Version None)
Quarter: 2009Q1

REPORT INFORMATION
  Report Type: 
  Country: None (occurrence: None)
  Receive Date: 20090227
  Receipt Date: 20080522
  Transmission Date: 20090719
  Serious: No
  Sender: FDA-Public Use
  Company Number: A0729244A

PATIENT
  Age: 36 Year
  Sex: Male

DRUGS (5)
  1. LAMICTAL [Suspect]
     Indication: BIPOLAR DISORDER
     Dosage: 25MG PER DAY
     Route: 048
     Dates: start: 20080506
  2. EFFEXOR [Concomitant]
  3. SYNTHROID [Concomitant]
  4. KLONOPIN [Concomitant]
  5. TRAZODONE HCL [Concomitant]

REACTIONS (1)
  - RASH [None]
